FAERS Safety Report 6231926-4 (Version None)
Quarter: 2009Q2

REPORT INFORMATION
  Report Type: 
  Country: None (occurrence: None)
  Receive Date: 20090616
  Receipt Date: 20090512
  Transmission Date: 20091009
  Serious: Yes (Other)
  Sender: FDA-Public Use
  Company Number: TR-ELI_LILLY_AND_COMPANY-TR200906003348

PATIENT
  Age: 57 Year

DRUGS (1)
  1. HUMULIN 70/30 [Suspect]
     Indication: DIABETES MELLITUS
     Dosage: 53 IU, DAILY (1/D)
     Route: 058

REACTIONS (3)
  - EYE HAEMORRHAGE [None]
  - RENAL PAIN [None]
  - SKIN ULCER [None]
